FAERS Safety Report 23631958 (Version 1)
Quarter: 2024Q1

REPORT INFORMATION
  Report Type: Spontaneous
  Country: US (occurrence: US)
  Receive Date: 20240314
  Receipt Date: 20240314
  Transmission Date: 20240410
  Serious: No
  Sender: FDA-Public Use
  Company Number: US-GSKCCFUS-Case-01954472_AE-108608

PATIENT
  Sex: Female

DRUGS (1)
  1. TRELEGY ELLIPTA [Suspect]
     Active Substance: FLUTICASONE FUROATE\UMECLIDINIUM BROMIDE\VILANTEROL TRIFENATATE
     Indication: Product used for unknown indication
     Dosage: 1 PUFF(S), QD, 200/62.5/25 MCG
     Route: 055

REACTIONS (9)
  - Eye pain [Unknown]
  - Arthralgia [Unknown]
  - Pollakiuria [Unknown]
  - Ocular hyperaemia [Unknown]
  - Vision blurred [Unknown]
  - Condition aggravated [Unknown]
  - Eyelid margin crusting [Unknown]
  - Eye inflammation [Unknown]
  - Cough [Unknown]
